FAERS Safety Report 14639398 (Version 2)
Quarter: 2018Q1

REPORT INFORMATION
  Report Type: Spontaneous
  Country: VN (occurrence: VN)
  Receive Date: 20180315
  Receipt Date: 20180322
  Transmission Date: 20180509
  Serious: Yes (Life-Threatening, Hospitalization, Other)
  Sender: FDA-Public Use
  Company Number: VN-B.I. PHARMACEUTICALS,INC./RIDGEFIELD-2018-BI-014069

PATIENT
  Age: 78 Year
  Sex: Male
  Weight: 55 kg

DRUGS (6)
  1. PRADAXA [Suspect]
     Active Substance: DABIGATRAN ETEXILATE MESYLATE
     Indication: PRODUCT USED FOR UNKNOWN INDICATION
     Route: 048
  2. LIPITOR [Concomitant]
     Active Substance: ATORVASTATIN CALCIUM
     Indication: PRODUCT USED FOR UNKNOWN INDICATION
     Route: 048
  3. ATORVASTATIN [Concomitant]
     Active Substance: ATORVASTATIN
     Indication: PRODUCT USED FOR UNKNOWN INDICATION
     Route: 065
  4. DIGOXIN. [Concomitant]
     Active Substance: DIGOXIN
     Indication: PRODUCT USED FOR UNKNOWN INDICATION
     Route: 065
  5. COVERAM [Concomitant]
     Active Substance: AMLODIPINE\PERINDOPRIL
     Indication: PRODUCT USED FOR UNKNOWN INDICATION
     Dosage: DOSE: 5/5 MG
     Route: 048
  6. VALSARTAN. [Concomitant]
     Active Substance: VALSARTAN
     Indication: PRODUCT USED FOR UNKNOWN INDICATION
     Route: 065

REACTIONS (14)
  - Pneumonia [Unknown]
  - Upper gastrointestinal haemorrhage [Recovered/Resolved]
  - Pallor [Unknown]
  - Sputum discoloured [Unknown]
  - Dyspnoea [Unknown]
  - Dyspnoea [Unknown]
  - Cerebral infarction [Unknown]
  - Pyrexia [Unknown]
  - Cough [Unknown]
  - Arrhythmia [Unknown]
  - Acute kidney injury [Unknown]
  - Cardio-respiratory arrest [Recovered/Resolved]
  - Coagulopathy [Unknown]
  - Fatigue [Unknown]

NARRATIVE: CASE EVENT DATE: 20170922
